FAERS Safety Report 11745795 (Version 1)
Quarter: 2015Q4

REPORT INFORMATION
  Report Type: Spontaneous
  Country: US (occurrence: None)
  Receive Date: 20151116
  Receipt Date: 20151116
  Transmission Date: 20160304
  Serious: Yes (Life-Threatening)
  Sender: FDA-Public Use
  Company Number: None

PATIENT
  Age: 58 Year
  Sex: Male
  Weight: 81.65 kg

DRUGS (5)
  1. BUPRENORPHINE 2 MG ETHYPHARM S.A. [Suspect]
     Active Substance: BUPRENORPHINE
     Indication: DEPRESSION
     Dosage: TAKEN UNDER THE TONGUE
  2. XANAX [Concomitant]
     Active Substance: ALPRAZOLAM
  3. ACETAMINOPHEN. [Concomitant]
     Active Substance: ACETAMINOPHEN
  4. TAGAMET [Concomitant]
     Active Substance: CIMETIDINE
  5. SENNOKOT-S [Concomitant]

REACTIONS (10)
  - Chest discomfort [None]
  - Product substitution issue [None]
  - Peripheral coldness [None]
  - Arthralgia [None]
  - Muscle spasms [None]
  - Hypoaesthesia [None]
  - Muscle tightness [None]
  - Musculoskeletal stiffness [None]
  - Pain in extremity [None]
  - Dizziness [None]

NARRATIVE: CASE EVENT DATE: 20151114
